FAERS Safety Report 20754475 (Version 3)
Quarter: 2024Q2

REPORT INFORMATION
  Report Type: Spontaneous
  Country: US (occurrence: None)
  Receive Date: 20220426
  Receipt Date: 20240418
  Transmission Date: 20240715
  Serious: No
  Sender: FDA-Public Use
  Company Number: US-ROCHE-2962467

PATIENT
  Sex: Female

DRUGS (3)
  1. ESBRIET [Suspect]
     Active Substance: PIRFENIDONE
     Indication: Idiopathic pulmonary fibrosis
     Route: 048
     Dates: start: 201701
  2. ESBRIET [Suspect]
     Active Substance: PIRFENIDONE
     Route: 048
     Dates: start: 201611
  3. ESBRIET [Suspect]
     Active Substance: PIRFENIDONE
     Route: 048
     Dates: start: 200012

REACTIONS (4)
  - Nausea [Unknown]
  - Dizziness [Unknown]
  - Diarrhoea [Unknown]
  - Weight decreased [Unknown]
